FAERS Safety Report 11120372 (Version 8)
Quarter: 2019Q4

REPORT INFORMATION
  Report Type: Spontaneous
  Country: US (occurrence: US)
  Receive Date: 20150518
  Receipt Date: 20191112
  Transmission Date: 20200122
  Serious: No
  Sender: FDA-Public Use
  Company Number: US-PFIZER INC-2015155833

PATIENT
  Age: 72 Year
  Sex: Male
  Weight: 109 kg

DRUGS (4)
  1. VIAGRA [Suspect]
     Active Substance: SILDENAFIL CITRATE
     Indication: PSYCHOSEXUAL DISORDER
     Dosage: 100 MG, AS NEEDED
     Dates: start: 2015
  2. VIAGRA [Suspect]
     Active Substance: SILDENAFIL CITRATE
     Dosage: 50 MG, UNK
     Dates: start: 2015
  3. VIAGRA [Suspect]
     Active Substance: SILDENAFIL CITRATE
     Dosage: UNK (25 MG TAKE 1/2 - 1 TABLET 30 MINUTES PRIOR TO SEXUAL ACTIVITY)
  4. VIAGRA [Suspect]
     Active Substance: SILDENAFIL CITRATE
     Dosage: 150 MG, UNK

REACTIONS (6)
  - Product use issue [Unknown]
  - Drug ineffective [Not Recovered/Not Resolved]
  - Off label use [Unknown]
  - Tension [Not Recovered/Not Resolved]
  - Drug tolerance increased [Unknown]
  - Headache [Not Recovered/Not Resolved]

NARRATIVE: CASE EVENT DATE: 2015
